FAERS Safety Report 18915692 (Version 1)
Quarter: 2021Q1

REPORT INFORMATION
  Report Type: Spontaneous
  Country: JP (occurrence: JP)
  Receive Date: 20210219
  Receipt Date: 20210219
  Transmission Date: 20210420
  Serious: No
  Sender: FDA-Public Use
  Company Number: JP-LUPIN PHARMACEUTICALS INC.-2021-01921

PATIENT
  Age: 29 Year
  Sex: Female

DRUGS (2)
  1. LEVOTHYROXINE. [Suspect]
     Active Substance: LEVOTHYROXINE
     Indication: HYPOTHYROIDISM
     Dosage: AT 29 WEEKS OF GESTATION, THE DOSE OF LEVOTHYROXINE SODIUM WAS DECREASED TO 50MCG PER DAY
     Route: 065
  2. LEVOTHYROXINE. [Suspect]
     Active Substance: LEVOTHYROXINE
     Indication: THYROID HORMONE REPLACEMENT THERAPY
     Dosage: 62.5 MICROGRAM, QD
     Route: 065

REACTIONS (1)
  - Maternal exposure during pregnancy [Unknown]
